FAERS Safety Report 9772928 (Version 1)
Quarter: 2013Q4

REPORT INFORMATION
  Report Type: Spontaneous
  Country: US (occurrence: US)
  Receive Date: 20131219
  Receipt Date: 20131219
  Transmission Date: 20140711
  Serious: No
  Sender: FDA-Public Use
  Company Number: US-PFIZER INC-2013358734

PATIENT
  Sex: Female

DRUGS (1)
  1. SILVADENE [Suspect]
     Indication: WOUND NECROSIS
     Dosage: UNK
     Route: 061
     Dates: start: 2013

REACTIONS (2)
  - Off label use [Unknown]
  - Drug ineffective [Unknown]
